FAERS Safety Report 18509797 (Version 1)
Quarter: 2020Q4

REPORT INFORMATION
  Report Type: Spontaneous
  Country: US (occurrence: US)
  Receive Date: 20201114
  Receipt Date: 20201114
  Transmission Date: 20210114
  Serious: No
  Sender: FDA-Public Use
  Company Number: None

PATIENT
  Sex: Female

DRUGS (1)
  1. TACROLIMUS  (ACCORD) 1MG  ACCORD HEALTHCARE [Suspect]
     Active Substance: TACROLIMUS
     Indication: PLASMA CELL MYELOMA
     Route: 048
     Dates: start: 202010

REACTIONS (2)
  - Therapy cessation [None]
  - Thrombosis [None]
